FAERS Safety Report 16066943 (Version 1)
Quarter: 2019Q1

REPORT INFORMATION
  Report Type: Spontaneous
  Country: US (occurrence: US)
  Receive Date: 20190313
  Receipt Date: 20190313
  Transmission Date: 20190418
  Serious: No
  Sender: FDA-Public Use
  Company Number: US-BAUSCH-BL-2019-006842

PATIENT
  Age: 35 Year
  Sex: Female

DRUGS (1)
  1. ARESTIN [Suspect]
     Active Substance: MINOCYCLINE HYDROCHLORIDE
     Indication: ADJUVANT THERAPY
     Dosage: THIRTEEN 6MM SITES
     Route: 065
     Dates: start: 20190219

REACTIONS (3)
  - Product physical consistency issue [Unknown]
  - Gingival discomfort [Unknown]
  - Gingival erythema [Unknown]

NARRATIVE: CASE EVENT DATE: 201902
